FAERS Safety Report 7652473-9 (Version None)
Quarter: 2011Q3

REPORT INFORMATION
  Report Type: 
  Country: None (occurrence: None)
  Receive Date: 20110803
  Receipt Date: 20110728
  Transmission Date: 20111222
  Serious: Yes (Hospitalization, Other)
  Sender: FDA-Public Use
  Company Number: US-AMGEN-USASP2011017986

PATIENT
  Age: 75 Year
  Sex: Male
  Weight: 67 kg

DRUGS (6)
  1. CYCLOSPORINE [Concomitant]
  2. NPLATE [Suspect]
     Indication: IDIOPATHIC THROMBOCYTOPENIC PURPURA
     Dosage: 10 A?G/KG, QWK
     Dates: start: 20081015, end: 20110701
  3. RITUXIMAB [Concomitant]
  4. DANOCRINE [Concomitant]
  5. CORTICOSTEROIDS [Concomitant]
  6. PREDNISONE [Concomitant]

REACTIONS (12)
  - THROMBOCYTOPENIA [None]
  - GASTROINTESTINAL HAEMORRHAGE [None]
  - THERAPEUTIC RESPONSE DECREASED [None]
  - HAEMORRHOIDS [None]
  - DIABETES MELLITUS [None]
  - HAEMORRHAGE [None]
  - PLATELET COUNT DECREASED [None]
  - HYPERCOAGULATION [None]
  - CARDIAC VALVE DISEASE [None]
  - THROMBOSIS [None]
  - ATRIAL FIBRILLATION [None]
  - DRUG INEFFECTIVE [None]
